FAERS Safety Report 9425473 (Version 1)
Quarter: 2013Q3

REPORT INFORMATION
  Report Type: Report from Study
  Country: US (occurrence: US)
  Receive Date: 20130729
  Receipt Date: 20130729
  Transmission Date: 20140515
  Serious: Yes (Hospitalization)
  Sender: FDA-Public Use
  Company Number: US-ABBOTT-13P-163-1123903-00

PATIENT
  Age: 56 Year
  Sex: Female
  Weight: 99.88 kg

DRUGS (7)
  1. HUMIRA [Suspect]
     Indication: RHEUMATOID ARTHRITIS
     Dates: start: 2007, end: 2012
  2. HUMIRA [Suspect]
     Dates: start: 201302
  3. METHOTREXATE [Concomitant]
     Indication: RHEUMATOID ARTHRITIS
  4. FLEXERIL [Concomitant]
     Indication: RHEUMATOID ARTHRITIS
  5. ZOLOFT [Concomitant]
     Indication: DEPRESSION
  6. TRANXENE [Concomitant]
     Indication: ANXIETY
  7. CARAFATE [Concomitant]
     Indication: GASTROOESOPHAGEAL REFLUX DISEASE

REACTIONS (7)
  - Aspiration [Recovered/Resolved]
  - Somnolence [Recovered/Resolved]
  - Burning sensation [Recovered/Resolved]
  - Vertigo [Recovered/Resolved]
  - Pneumonia aspiration [Recovered/Resolved]
  - Productive cough [Recovered/Resolved]
  - Dyspnoea [Recovered/Resolved]
